FAERS Safety Report 22089368 (Version 1)
Quarter: 2023Q1

REPORT INFORMATION
  Report Type: Spontaneous
  Country: US (occurrence: None)
  Receive Date: 20230311
  Receipt Date: 20230311
  Transmission Date: 20230418
  Serious: No
  Sender: FDA-Public Use
  Company Number: None

PATIENT
  Sex: Female

DRUGS (1)
  1. DILTIAZEM [Suspect]
     Active Substance: DILTIAZEM
     Indication: Hypertension
     Dosage: 1 CAPSULE  TWICE A DAY ORAL?
     Route: 048
     Dates: start: 20230225

REACTIONS (4)
  - Product substitution issue [None]
  - Blood pressure increased [None]
  - Dizziness [None]
  - Headache [None]
